FAERS Safety Report 7267317-7 (Version None)
Quarter: 2011Q1

REPORT INFORMATION
  Report Type: 
  Country: None (occurrence: None)
  Receive Date: 20110201
  Receipt Date: 20100524
  Transmission Date: 20110831
  Serious: No
  Sender: FDA-Public Use
  Company Number: A0838750A

PATIENT
  Age: 41 Year
  Sex: Female

DRUGS (3)
  1. ARIXTRA [Suspect]
     Dosage: 10MG PER DAY
     Route: 058
  2. PAXIL [Concomitant]
  3. INSULIN [Concomitant]

REACTIONS (6)
  - ABDOMINAL PAIN UPPER [None]
  - INJECTION SITE HAEMATOMA [None]
  - CONTUSION [None]
  - PRODUCT QUALITY ISSUE [None]
  - INJECTION SITE PAIN [None]
  - DRUG INEFFECTIVE [None]
